FAERS Safety Report 10421505 (Version 2)
Quarter: 2014Q3

REPORT INFORMATION
  Report Type: Spontaneous
  Country: DK (occurrence: DK)
  Receive Date: 20140901
  Receipt Date: 20140901
  Transmission Date: 20150326
  Serious: Yes (Other)
  Sender: FDA-Public Use
  Company Number: DK-ROCHE-1253264

PATIENT
  Age: 76 Year
  Sex: Female

DRUGS (3)
  1. ZOMETA [Suspect]
     Active Substance: ZOLEDRONIC ACID
     Indication: METASTASES TO BONE
     Dosage: STRENGTH: 4 MG/100 ML.
     Route: 042
     Dates: start: 2004, end: 2008
  2. ZOMETA [Suspect]
     Active Substance: ZOLEDRONIC ACID
     Indication: METASTASES TO BONE
     Dosage: STRENGTH: 4 MG/100 ML.
     Route: 042
     Dates: start: 2011, end: 20121002
  3. BONDRONAT [Suspect]
     Active Substance: IBANDRONIC ACID
     Indication: METASTASES TO BONE
     Route: 048
     Dates: start: 2008, end: 2011

REACTIONS (6)
  - Infection [Recovered/Resolved]
  - Surgery [Recovered/Resolved]
  - Swelling [Recovered/Resolved]
  - Osteonecrosis of jaw [Recovered/Resolved]
  - Exposed bone in jaw [Recovered/Resolved]
  - Loose tooth [Recovered/Resolved]

NARRATIVE: CASE EVENT DATE: 20130603
